FAERS Safety Report 10423561 (Version 2)
Quarter: 2014Q3

REPORT INFORMATION
  Report Type: Spontaneous
  Country: US (occurrence: US)
  Receive Date: 20140902
  Receipt Date: 20140902
  Transmission Date: 20150326
  Serious: Yes (Hospitalization)
  Sender: FDA-Public Use
  Company Number: US-RECKITT BENCKISER PHARMACEUTICAL, INC-RB-68245-2014

PATIENT
  Age: 0 Year
  Sex: Female
  Weight: 2.58 kg

DRUGS (5)
  1. BUPRENORPHINE GENERIC [Suspect]
     Active Substance: BUPRENORPHINE
     Dosage: 8 MG, BID
     Route: 063
     Dates: start: 20140417
  2. OPIOIDS [Suspect]
     Active Substance: UNSPECIFIED INGREDIENT
     Indication: DRUG DEPENDENCE
     Dosage: UNK
     Route: 064
     Dates: start: 201307, end: 201312
  3. NICOTINE. [Suspect]
     Active Substance: NICOTINE
     Dosage: THE NEONATE^S MOTHER WAS SMOKING 20 CIGARETTES DAILY
     Route: 063
     Dates: start: 20140417
  4. BUPRENORPHINE GENERIC [Suspect]
     Active Substance: BUPRENORPHINE
     Indication: DRUG DEPENDENCE
     Dosage: 8 MG, BID
     Route: 064
     Dates: start: 201312, end: 20140417
  5. NICOTINE. [Suspect]
     Active Substance: NICOTINE
     Indication: NICOTINE DEPENDENCE
     Dosage: THE NEONATE^S MOTHER WAS SMOKING 20 CIGARETTES DAILY
     Route: 064
     Dates: start: 201307, end: 20140417

REACTIONS (4)
  - Exposure during breast feeding [Not Recovered/Not Resolved]
  - Hospitalisation [Recovered/Resolved]
  - Foetal exposure during pregnancy [Recovered/Resolved]
  - Maternal drugs affecting foetus [None]

NARRATIVE: CASE EVENT DATE: 201312
